FAERS Safety Report 5336477-7 (Version None)
Quarter: 2007Q2

REPORT INFORMATION
  Report Type: 
  Country: None (occurrence: None)
  Receive Date: 20070524
  Receipt Date: 20070513
  Transmission Date: 20071010
  Serious: Yes (Hospitalization)
  Sender: FDA-Public Use
  Company Number: 2007S1004325

PATIENT
  Age: 71 Year
  Sex: Female

DRUGS (1)
  1. HYDROCHLOROTHIAZIDE/AMILORIDE HYDROHCLORIDE (HYDROCHLOROTHIAZIDE/AMILO [Suspect]
     Indication: HYPERTENSION
     Dosage: 5 MG;X1;ORAL
     Route: 048

REACTIONS (7)
  - ACIDOSIS [None]
  - ACUTE RESPIRATORY FAILURE [None]
  - DYSPNOEA [None]
  - LEUKOPENIA [None]
  - MALAISE [None]
  - PULMONARY OEDEMA [None]
  - SHOCK [None]
